FAERS Safety Report 16302955 (Version 1)
Quarter: 2019Q2

REPORT INFORMATION
  Report Type: Spontaneous
  Country: IT (occurrence: IT)
  Receive Date: 20190513
  Receipt Date: 20190513
  Transmission Date: 20190711
  Serious: Yes (Death, Life-Threatening, Hospitalization, Other)
  Sender: FDA-Public Use
  Company Number: IT-ACCORD-126593

PATIENT
  Age: 57 Year
  Sex: Male

DRUGS (5)
  1. WARFARIN [Concomitant]
     Active Substance: WARFARIN
     Route: 048
  2. RANITIDINE. [Concomitant]
     Active Substance: RANITIDINE
     Route: 048
  3. BISOPROLOL [Concomitant]
     Active Substance: BISOPROLOL
     Route: 048
  4. FUROSEMIDE. [Concomitant]
     Active Substance: FUROSEMIDE
     Route: 048
  5. ALLOPURINOL. [Suspect]
     Active Substance: ALLOPURINOL
     Indication: HYPERURICAEMIA
     Dates: start: 201611, end: 201612

REACTIONS (14)
  - Herpes simplex pneumonia [Fatal]
  - Drug reaction with eosinophilia and systemic symptoms [Fatal]
  - Cytomegalovirus infection [Fatal]
  - Interstitial lung disease [Not Recovered/Not Resolved]
  - Demyelinating polyneuropathy [Recovered/Resolved]
  - Endocarditis staphylococcal [Recovered/Resolved]
  - Respiratory disorder [Fatal]
  - Pneumonia bacterial [Recovered/Resolved]
  - Sepsis [Fatal]
  - Staphylococcal infection [Recovered/Resolved]
  - Herpes simplex [Not Recovered/Not Resolved]
  - Multiple organ dysfunction syndrome [Unknown]
  - Cardiac arrest [Recovered/Resolved]
  - Human herpesvirus 6 infection [Not Recovered/Not Resolved]

NARRATIVE: CASE EVENT DATE: 201612
